FAERS Safety Report 8601077-X (Version None)
Quarter: 2012Q3

REPORT INFORMATION
  Report Type: 
  Country: None (occurrence: None)
  Receive Date: 20120806
  Receipt Date: 20120730
  Transmission Date: 20120928
  Serious: Yes (Other)
  Sender: FDA-Public Use
  Company Number: PR-AE12-000111

PATIENT
  Age: 56 Year
  Sex: Female

DRUGS (9)
  1. CLOPIDOGREL BISULFATE [Suspect]
     Indication: PRODUCT USED FOR UNKNOWN INDICATION
     Dosage: ORAL
     Route: 048
  2. BUPROPION HYDROCHLORIDE (BUPROPION) [Concomitant]
  3. ASPIRIN [Suspect]
     Indication: PRODUCT USED FOR UNKNOWN INDICATION
     Dosage: ORAL
     Route: 048
  4. ALPRAZOLAM [Concomitant]
  5. INTERFERON BETA-1A [Suspect]
     Indication: MULTIPLE SCLEROSIS
     Dosage: 44 MCG-3XWEEK-INJECTION
     Dates: start: 20031017
  6. PROPRANOLOL HYDROCHLORIDE [Suspect]
     Indication: PRODUCT USED FOR UNKNOWN INDICATION
     Dosage: UNK
  7. ATENOLOL [Suspect]
     Indication: PRODUCT USED FOR UNKNOWN INDICATION
     Dosage: UNK
  8. VALIUM [Concomitant]
  9. PRINZIDE [Concomitant]

REACTIONS (4)
  - HEAD INJURY [None]
  - CEREBRAL ISCHAEMIA [None]
  - LACUNAR INFARCTION [None]
  - FALL [None]
